FAERS Safety Report 8373232-8 (Version None)
Quarter: 2012Q2

REPORT INFORMATION
  Report Type: 
  Country: None (occurrence: None)
  Receive Date: 20120521
  Receipt Date: 20120514
  Transmission Date: 20120825
  Serious: Yes (Life-Threatening, Hospitalization)
  Sender: FDA-Public Use
  Company Number: US-BAYER-2012-027095

PATIENT
  Age: 21 Year
  Sex: Female
  Weight: 58.05 kg

DRUGS (4)
  1. YAZ [Suspect]
     Dosage: UNK
     Dates: start: 20090101, end: 20120201
  2. PREDNISONE [Concomitant]
  3. ZITHROMAX [Concomitant]
  4. ALBUTEROL [Concomitant]
     Indication: CONTRACEPTION
     Dosage: UNK
     Dates: start: 20090101, end: 20120201

REACTIONS (3)
  - THROMBOSIS [None]
  - DEEP VEIN THROMBOSIS [None]
  - PULMONARY EMBOLISM [None]
